FAERS Safety Report 9324147 (Version 2)
Quarter: 2013Q2

REPORT INFORMATION
  Report Type: Spontaneous
  Country: US (occurrence: US)
  Receive Date: 20130603
  Receipt Date: 20130613
  Transmission Date: 20140414
  Serious: Yes (Other)
  Sender: FDA-Public Use
  Company Number: US-UCBSA-086983

PATIENT
  Age: 65 Year
  Sex: Male
  Weight: 58.51 kg

DRUGS (2)
  1. CIMZIA [Suspect]
     Indication: RHEUMATOID ARTHRITIS
     Dosage: MAINTENANCE PHASE
     Dates: start: 20100103, end: 20130518
  2. ATELVIA [Concomitant]
     Dates: start: 20120901

REACTIONS (1)
  - Prostate cancer [Unknown]
